FAERS Safety Report 11314779 (Version 3)
Quarter: 2016Q1

REPORT INFORMATION
  Report Type: Spontaneous
  Country: US (occurrence: US)
  Receive Date: 20150727
  Receipt Date: 20160226
  Transmission Date: 20160525
  Serious: No
  Sender: FDA-Public Use
  Company Number: US-GLAXOSMITHKLINE-US2015106482

PATIENT
  Age: 47 Year
  Sex: Female

DRUGS (20)
  1. BENLYSTA [Suspect]
     Active Substance: BELIMUMAB
     Dosage: 120 MG, UNK
     Route: 042
     Dates: start: 20130211
  2. ACIPHEX [Concomitant]
     Active Substance: RABEPRAZOLE SODIUM
  3. COREG [Concomitant]
     Active Substance: CARVEDILOL
  4. AMBIEN [Concomitant]
     Active Substance: ZOLPIDEM TARTRATE
  5. SYMBICORT [Concomitant]
     Active Substance: BUDESONIDE\FORMOTEROL FUMARATE DIHYDRATE
  6. POTASSIUM [Concomitant]
     Active Substance: POTASSIUM
  7. NORCO [Concomitant]
     Active Substance: ACETAMINOPHEN\HYDROCODONE BITARTRATE
  8. LISINOPRIL. [Concomitant]
     Active Substance: LISINOPRIL
  9. FOLIC ACID. [Concomitant]
     Active Substance: FOLIC ACID
  10. METHOTREXATE [Concomitant]
     Active Substance: METHOTREXATE
  11. ZOFRAN [Concomitant]
     Active Substance: ONDANSETRON HYDROCHLORIDE
  12. PRILOSEC [Concomitant]
     Active Substance: OMEPRAZOLE MAGNESIUM
  13. AMLODIPINE [Concomitant]
     Active Substance: AMLODIPINE BESYLATE
  14. BUTRANS [Concomitant]
     Active Substance: BUPRENORPHINE
  15. METOLAZONE. [Concomitant]
     Active Substance: METOLAZONE
  16. CARAFATE [Concomitant]
     Active Substance: SUCRALFATE
  17. KRISTALOSE [Concomitant]
     Active Substance: LACTULOSE
  18. BENLYSTA [Suspect]
     Active Substance: BELIMUMAB
     Indication: SYSTEMIC LUPUS ERYTHEMATOSUS
     Dosage: 1800 MG, CYC
     Route: 042
     Dates: start: 201305
  19. ADVAIR HFA [Concomitant]
     Active Substance: FLUTICASONE PROPIONATE\SALMETEROL XINAFOATE
  20. PLAQUENIL [Concomitant]
     Active Substance: HYDROXYCHLOROQUINE SULFATE

REACTIONS (9)
  - Seborrhoeic dermatitis [Not Recovered/Not Resolved]
  - Hair growth abnormal [Unknown]
  - Trismus [Not Recovered/Not Resolved]
  - Skin burning sensation [Not Recovered/Not Resolved]
  - Rash [Not Recovered/Not Resolved]
  - Rash generalised [Not Recovered/Not Resolved]
  - Rash pruritic [Not Recovered/Not Resolved]
  - Alopecia [Not Recovered/Not Resolved]
  - Skin disorder [Not Recovered/Not Resolved]

NARRATIVE: CASE EVENT DATE: 201504
